FAERS Safety Report 9628910 (Version 1)
Quarter: 2013Q4

REPORT INFORMATION
  Report Type: Spontaneous
  Country: US (occurrence: US)
  Receive Date: 20131017
  Receipt Date: 20131017
  Transmission Date: 20140711
  Serious: Yes (Other)
  Sender: FDA-Public Use
  Company Number: US-BAYER-2013-122744

PATIENT
  Age: 66 Year
  Sex: Male
  Weight: 83.9 kg

DRUGS (1)
  1. PHILLIPS STOOL SOFTENER BULK DOCUSATE [Suspect]
     Dosage: 3 DF, PRN
     Route: 048
     Dates: start: 20131007

REACTIONS (1)
  - Haematochezia [Not Recovered/Not Resolved]
